FAERS Safety Report 25074392 (Version 1)
Quarter: 2025Q1

REPORT INFORMATION
  Report Type: Other
  Country: JP (occurrence: JP)
  Receive Date: 20250313
  Receipt Date: 20250313
  Transmission Date: 20250409
  Serious: Yes (Hospitalization, Other)
  Sender: ANI
  Company Number: JP-ANIPHARMA-015892

PATIENT
  Age: 81 Year
  Sex: Female

DRUGS (20)
  1. CYCLOPHOSPHAMIDE [Suspect]
     Active Substance: CYCLOPHOSPHAMIDE
     Indication: Follicular lymphoma stage IV
  2. FLUDARABINE [Concomitant]
     Active Substance: FLUDARABINE PHOSPHATE
     Indication: Follicular lymphoma stage IV
  3. TISAGENLECLEUCEL [Concomitant]
     Active Substance: TISAGENLECLEUCEL
     Indication: Follicular lymphoma stage IV
  4. ACYCLOVIR [Concomitant]
     Active Substance: ACYCLOVIR
     Indication: Product used for unknown indication
  5. LANSOPRAZOLE [Concomitant]
     Active Substance: LANSOPRAZOLE
     Indication: Product used for unknown indication
  6. FEBUXOSTAT [Concomitant]
     Active Substance: FEBUXOSTAT
     Indication: Product used for unknown indication
  7. LEVETIRACETAM [Concomitant]
     Active Substance: LEVETIRACETAM
     Indication: Product used for unknown indication
  8. POSACONAZOLE [Concomitant]
     Active Substance: POSACONAZOLE
     Indication: Product used for unknown indication
  9. APIXABAN [Concomitant]
     Active Substance: APIXABAN
     Indication: Product used for unknown indication
  10. ROSUVASTATIN [Concomitant]
     Active Substance: ROSUVASTATIN
     Indication: Product used for unknown indication
  11. ALFACALCIDOL [Concomitant]
     Active Substance: ALFACALCIDOL
     Indication: Product used for unknown indication
  12. TOCILIZUMAB [Concomitant]
     Active Substance: TOCILIZUMAB
     Indication: Cytokine release syndrome
  13. METHYLPREDNISOLONE [Concomitant]
     Active Substance: METHYLPREDNISOLONE
     Indication: Product used for unknown indication
  14. OBINUTUZUMAB [Concomitant]
     Active Substance: OBINUTUZUMAB
     Indication: Follicular lymphoma stage IV
  15. BENDAMUSTINE [Concomitant]
     Active Substance: BENDAMUSTINE
     Indication: Follicular lymphoma stage IV
  16. RITUXIMAB [Concomitant]
     Active Substance: RITUXIMAB
     Indication: Follicular lymphoma stage IV
  17. LENALIDOMIDE [Concomitant]
     Active Substance: LENALIDOMIDE
     Indication: Follicular lymphoma stage IV
  18. TOCILIZUMAB [Concomitant]
     Active Substance: TOCILIZUMAB
     Indication: Cytokine release syndrome
  19. TOCILIZUMAB [Concomitant]
     Active Substance: TOCILIZUMAB
     Indication: Cytokine release syndrome
  20. TOCILIZUMAB [Concomitant]
     Active Substance: TOCILIZUMAB
     Indication: Cytokine release syndrome

REACTIONS (1)
  - Small intestinal ulcer perforation [Unknown]
